FAERS Safety Report 6234111-5 (Version None)
Quarter: 2009Q2

REPORT INFORMATION
  Report Type: 
  Country: None (occurrence: None)
  Receive Date: 20090618
  Receipt Date: 20090610
  Transmission Date: 20091009
  Serious: Yes (Hospitalization)
  Sender: FDA-Public Use
  Company Number: US-BAYER-200923334NA

PATIENT
  Age: 27 Year
  Sex: Female
  Weight: 73 kg

DRUGS (4)
  1. MIRENA [Suspect]
     Indication: DRUG USE FOR UNKNOWN INDICATION
     Dates: start: 20090216, end: 20090216
  2. CELEXA [Concomitant]
  3. ADIPEX [Concomitant]
     Dosage: BID
  4. NUBAIN [Concomitant]
     Route: 042

REACTIONS (2)
  - DEVICE BREAKAGE [None]
  - POST PROCEDURAL HAEMORRHAGE [None]
